FAERS Safety Report 23117978 (Version 3)
Quarter: 2023Q4

REPORT INFORMATION
  Report Type: Spontaneous
  Country: US (occurrence: US)
  Receive Date: 20231027
  Receipt Date: 20231114
  Transmission Date: 20240109
  Serious: Yes (Other)
  Sender: FDA-Public Use
  Company Number: US-PFIZER INC-202300348127

PATIENT
  Age: 56 Year
  Sex: Female
  Weight: 64.86 kg

DRUGS (3)
  1. DEPO-ESTRADIOL [Suspect]
     Active Substance: ESTRADIOL CYPIONATE
     Indication: Menopause
     Dosage: 0.1 ML, WEEKLY
     Dates: start: 20231019, end: 20231019
  2. DEPO-ESTRADIOL [Suspect]
     Active Substance: ESTRADIOL CYPIONATE
     Dosage: 0.1CC IN HER LEFT GLUTE
     Route: 030
     Dates: start: 20231026, end: 20231026
  3. LEVOTHYROXINE [Concomitant]
     Active Substance: LEVOTHYROXINE
     Indication: Hypothyroidism
     Dosage: 88 UG, DAILY (EVERY MORNING)
     Dates: start: 2014

REACTIONS (11)
  - Hypersensitivity [Recovered/Resolved]
  - Upper respiratory tract congestion [Recovered/Resolved]
  - Sinus congestion [Recovered/Resolved]
  - Eye pruritus [Recovered/Resolved]
  - Brain fog [Recovered/Resolved]
  - Chest discomfort [Recovered/Resolved]
  - Confusional state [Recovered/Resolved]
  - Pruritus [Recovered/Resolved]
  - Feeling abnormal [Recovered/Resolved]
  - Anxiety [Recovered/Resolved]
  - Off label use [Unknown]

NARRATIVE: CASE EVENT DATE: 20231019
